FAERS Safety Report 7542919-9 (Version None)
Quarter: 2011Q2

REPORT INFORMATION
  Report Type: 
  Country: None (occurrence: None)
  Receive Date: 20110613
  Receipt Date: 20110601
  Transmission Date: 20111010
  Serious: Yes (Other)
  Sender: FDA-Public Use
  Company Number: PHHY2011BR16248

PATIENT
  Sex: Female
  Weight: 84 kg

DRUGS (4)
  1. PROPAFENONE HCL [Concomitant]
     Dosage: 300 MG, TID
     Route: 048
  2. SOMALGIN [Concomitant]
     Indication: ANTICOAGULANT THERAPY
     Dosage: 100 MG, TABLET , DAILY
  3. DIOVAN HCT [Suspect]
     Indication: HYPERTENSION
     Dosage: 160/12.5 MG, DAILY
     Route: 048
  4. PRAMIPEXOLE DIHYCHLLORIDE [Concomitant]
     Dosage: 75 MG, TABLET, DAILY
     Route: 048

REACTIONS (2)
  - ARRHYTHMIA [None]
  - BLOOD PRESSURE INCREASED [None]
